FAERS Safety Report 10204010 (Version 1)
Quarter: 2014Q2

REPORT INFORMATION
  Report Type: Spontaneous
  Country: JP (occurrence: JP)
  Receive Date: 20140529
  Receipt Date: 20140529
  Transmission Date: 20141212
  Serious: Yes (Death)
  Sender: FDA-Public Use
  Company Number: JP-MALLINCKRODT-T201402300

PATIENT
  Age: 64 Year
  Sex: Female
  Weight: 58 kg

DRUGS (23)
  1. METHADONE [Suspect]
     Indication: CANCER PAIN
     Dosage: 5 MG, (15 MG DAILY DOSE)
     Route: 048
     Dates: start: 20140203, end: 20140302
  2. METHADONE [Suspect]
     Dosage: 10 MG, (20 MG DAILY DOSE)
     Route: 048
     Dates: start: 20140303, end: 20140306
  3. METHADONE [Suspect]
     Dosage: 10 MG, (30 MG DAILY DOSE)
     Route: 048
     Dates: start: 20140307, end: 20140327
  4. METHADONE [Suspect]
     Dosage: 15 MG, (45 MG DAILY DOSE)
     Route: 048
     Dates: start: 20140328, end: 20140330
  5. OXINORM [Concomitant]
     Dosage: 5-20 MG, PRN
     Route: 048
     Dates: start: 20140202, end: 20140203
  6. ANPEC [Concomitant]
     Dosage: UNK, PRN
     Route: 058
     Dates: start: 20140331, end: 20140402
  7. MAGMITT [Concomitant]
     Dosage: 990 MG, UNK
     Route: 048
     Dates: end: 20140325
  8. AMARYL [Concomitant]
     Dosage: 1 MG, UNK
     Route: 048
     Dates: end: 20140313
  9. NEXIUM [Concomitant]
     Dosage: 20 MG, UNK
     Route: 048
     Dates: end: 20140327
  10. LOXOPROFEN SODIUM [Concomitant]
     Dosage: 180 MG, UNK
     Route: 048
     Dates: end: 20140327
  11. REBAMIPIDE [Concomitant]
     Dosage: 300 MG, UNK
     Route: 048
     Dates: end: 20140327
  12. EQUA [Concomitant]
     Dosage: 100 MG, UNK
     Route: 048
     Dates: end: 20140313
  13. STARSIS [Concomitant]
     Dosage: 270 MG, UNK
     Route: 048
     Dates: end: 20140313
  14. ACTOS [Concomitant]
     Dosage: 15 MG, UNK
     Route: 048
     Dates: end: 20140313
  15. EDIROL [Concomitant]
     Dosage: 0.75 ?G, UNK
     Route: 048
     Dates: end: 20140324
  16. DEPAS [Concomitant]
     Dosage: 1 MG, UNK
     Route: 048
     Dates: end: 20140327
  17. VOLTAREN [Concomitant]
     Dosage: 50 MG, UNK
     Route: 054
     Dates: end: 20140327
  18. PAXIL [Concomitant]
     Dosage: 10 MG, UNK
     Route: 048
     Dates: end: 20140213
  19. MEILAX [Concomitant]
     Dosage: 1 MG, UNK
     Route: 048
     Dates: end: 20140213
  20. DOGMATYL [Concomitant]
     Dosage: 100 MG, UNK
     Route: 048
     Dates: end: 20140327
  21. BROTIZOLAM [Concomitant]
     Dosage: 0.25 MG, UNK
     Route: 048
     Dates: end: 20140213
  22. BETANAMIN [Concomitant]
     Dosage: 10 MG, UNK
     Route: 048
     Dates: end: 20140327
  23. TS-1 [Concomitant]
     Indication: PANCREATIC CARCINOMA
     Dosage: 120 MG, UNK
     Route: 048
     Dates: start: 20140120, end: 20140314

REACTIONS (1)
  - Pancreatic carcinoma [Fatal]
